FAERS Safety Report 8566970 (Version 3)
Quarter: 2018Q4

REPORT INFORMATION
  Report Type: Spontaneous
  Country: SE (occurrence: SE)
  Receive Date: 20120517
  Receipt Date: 20181116
  Transmission Date: 20190205
  Serious: Yes (Hospitalization)
  Sender: FDA-Public Use
  Company Number: SE-ASTRAZENECA-2012SE29983

PATIENT
  Age: 80 Year
  Sex: Female

DRUGS (7)
  1. VIMOVO [Suspect]
     Active Substance: ESOMEPRAZOLE MAGNESIUM\NAPROXEN
     Dosage: 500 MG/20 MG ONCE DAILY
     Route: 048
     Dates: start: 20120131, end: 20120217
  2. METOPROLOL. [Concomitant]
     Active Substance: METOPROLOL
  3. FELODIPIN [Concomitant]
     Active Substance: FELODIPINE
     Route: 048
  4. STILNOCT [Concomitant]
     Active Substance: ZOLPIDEM TARTRATE
  5. MELATONIN [Concomitant]
     Active Substance: MELATONIN
  6. TROMBYL [Concomitant]
     Active Substance: ASPIRIN
  7. ALVEDON [Concomitant]
     Active Substance: ACETAMINOPHEN

REACTIONS (2)
  - Hepatic function abnormal [Recovered/Resolved]
  - Atrial fibrillation [Recovered/Resolved]

NARRATIVE: CASE EVENT DATE: 20120220
